FAERS Safety Report 23669094 (Version 1)
Quarter: 2024Q1

REPORT INFORMATION
  Report Type: Spontaneous
  Country: US (occurrence: US)
  Receive Date: 20240325
  Receipt Date: 20240325
  Transmission Date: 20240410
  Serious: Yes (Other)
  Sender: FDA-Public Use
  Company Number: US-STRIDES ARCOLAB LIMITED-2024SP003394

PATIENT

DRUGS (7)
  1. DIAZEPAM [Suspect]
     Active Substance: DIAZEPAM
     Indication: Abdominal rigidity
     Dosage: UNK
     Route: 048
  2. BACLOFEN [Suspect]
     Active Substance: BACLOFEN
     Indication: Abdominal rigidity
     Dosage: UNK
     Route: 048
  3. BACLOFEN [Suspect]
     Active Substance: BACLOFEN
     Dosage: UNK (RESUMED)
     Route: 048
  4. BACLOFEN [Suspect]
     Active Substance: BACLOFEN
     Dosage: 20 MILLIGRAM, EVERY 6 HRS
     Route: 065
  5. TIZANIDINE [Suspect]
     Active Substance: TIZANIDINE
     Indication: Abdominal rigidity
     Dosage: UNK
     Route: 048
  6. TIZANIDINE [Suspect]
     Active Substance: TIZANIDINE
     Dosage: 6 MILLIGRAM, EVERY 8 HOURS
     Route: 065
  7. DANTROLENE [Suspect]
     Active Substance: DANTROLENE
     Indication: Abdominal rigidity
     Dosage: UNK
     Route: 048

REACTIONS (1)
  - Treatment failure [Unknown]
